FAERS Safety Report 8473050-6 (Version None)
Quarter: 2012Q2

REPORT INFORMATION
  Report Type: 
  Country: None (occurrence: None)
  Receive Date: 20120627
  Receipt Date: 20120621
  Transmission Date: 20120825
  Serious: Yes (Hospitalization)
  Sender: FDA-Public Use
  Company Number: US-BAXTER-2012BAX004868

PATIENT
  Sex: Female
  Weight: 65.5 kg

DRUGS (21)
  1. DIGOXIN [Concomitant]
     Route: 048
  2. THEOPHYLLINE [Concomitant]
     Route: 048
  3. ZOCOR [Concomitant]
     Route: 048
  4. VITAMIN D [Concomitant]
     Route: 048
  5. ARALAST NP [Suspect]
     Indication: ALPHA-1 ANTI-TRYPSIN DEFICIENCY
     Route: 042
     Dates: end: 20120101
  6. MULTI-VITAMIN [Concomitant]
     Route: 048
  7. XOPENEX [Concomitant]
     Route: 048
  8. REQUIP [Concomitant]
     Route: 048
  9. PREDNISONE TAB [Concomitant]
     Route: 048
  10. SALAGEN [Concomitant]
     Route: 048
  11. ATIVAN [Concomitant]
     Route: 048
  12. CALCIUM CITRATE [Concomitant]
     Route: 048
  13. CARTIA XT [Concomitant]
     Route: 048
  14. SINGULAIR [Concomitant]
     Route: 048
  15. CELEXA [Concomitant]
     Route: 048
  16. NEXIUM [Concomitant]
     Route: 048
  17. CARTIA XT [Concomitant]
     Route: 048
  18. POTASSIUM ACETATE [Concomitant]
     Route: 048
  19. FISH OIL [Concomitant]
     Route: 048
  20. PERCOCET [Concomitant]
     Route: 048
  21. MYLANTA [Concomitant]
     Route: 048

REACTIONS (7)
  - DYSPNOEA [None]
  - MALAISE [None]
  - ASTHENIA [None]
  - PNEUMONIA [None]
  - SPINAL FRACTURE [None]
  - FATIGUE [None]
  - FAECALOMA [None]
